FAERS Safety Report 9788776 (Version 2)
Quarter: 2014Q3

REPORT INFORMATION
  Report Type: Report from Study
  Country: US (occurrence: US)
  Receive Date: 20131230
  Receipt Date: 20140904
  Transmission Date: 20150326
  Serious: No
  Sender: FDA-Public Use
  Company Number: US-ALEXION-A201304213

PATIENT

DRUGS (1)
  1. SOLIRIS [Suspect]
     Active Substance: ECULIZUMAB
     Indication: HAEMOLYTIC URAEMIC SYNDROME
     Dosage: UNK
     Route: 042

REACTIONS (7)
  - Pain in extremity [Unknown]
  - Dizziness [Recovered/Resolved]
  - Blood glucose abnormal [Unknown]
  - Confusional state [Recovered/Resolved]
  - Cold sweat [Recovered/Resolved]
  - Anaemia [Unknown]
  - Influenza like illness [Unknown]
